FAERS Safety Report 8508777 (Version 3)
Quarter: 2015Q4

REPORT INFORMATION
  Report Type: Spontaneous
  Country: US (occurrence: US)
  Receive Date: 20120412
  Receipt Date: 20151202
  Transmission Date: 20160305
  Serious: No
  Sender: FDA-Public Use
  Company Number: US-ASTRAZENECA-2011SE72620

PATIENT
  Age: 50 Year
  Sex: Male
  Weight: 117.9 kg

DRUGS (8)
  1. LOVASTATIN. [Concomitant]
     Active Substance: LOVASTATIN
     Indication: BLOOD CHOLESTEROL
  2. PROZAC [Concomitant]
     Active Substance: FLUOXETINE HYDROCHLORIDE
  3. NEXIUM [Suspect]
     Active Substance: ESOMEPRAZOLE MAGNESIUM
     Indication: GASTROOESOPHAGEAL REFLUX DISEASE
     Route: 048
  4. NEXIUM [Suspect]
     Active Substance: ESOMEPRAZOLE MAGNESIUM
     Indication: GASTROOESOPHAGEAL REFLUX DISEASE
     Dosage: ESOMEPRAZOLE, 40 MG DAILY
     Route: 048
     Dates: start: 2014
  5. GENERIC ZERTEC [Concomitant]
     Indication: MULTIPLE ALLERGIES
  6. TRAMADOL. [Concomitant]
     Active Substance: TRAMADOL
     Indication: BACK DISORDER
  7. CAPTOPRIL. [Concomitant]
     Active Substance: CAPTOPRIL
     Indication: BLOOD PRESSURE MEASUREMENT
  8. DIAZEPAM. [Concomitant]
     Active Substance: DIAZEPAM
     Indication: PANIC DISORDER

REACTIONS (9)
  - Gastrooesophageal reflux disease [Unknown]
  - Dyspepsia [Unknown]
  - Throat irritation [Unknown]
  - Insomnia [Unknown]
  - Choking [Unknown]
  - Drug ineffective [Unknown]
  - Extra dose administered [Unknown]
  - Visual acuity reduced [Unknown]
  - Intentional product misuse [Unknown]
